FAERS Safety Report 19076023 (Version 1)
Quarter: 2021Q1

REPORT INFORMATION
  Report Type: Spontaneous
  Country: US (occurrence: US)
  Receive Date: 20210331
  Receipt Date: 20210331
  Transmission Date: 20210420
  Serious: No
  Sender: FDA-Public Use
  Company Number: US-LUPIN PHARMACEUTICALS INC.-2021-03851

PATIENT
  Sex: Female
  Weight: 54.42 kg

DRUGS (1)
  1. GAVILAX [Suspect]
     Active Substance: POLYETHYLENE GLYCOL 3350
     Indication: CONSTIPATION
     Dosage: UNK UNK, SINGLE 31 OUNCE (TOOK ONCE)
     Route: 065
     Dates: start: 2021

REACTIONS (3)
  - No adverse event [Unknown]
  - Poor quality product administered [Unknown]
  - Product odour abnormal [Unknown]
